FAERS Safety Report 6248752-2 (Version None)
Quarter: 2009Q2

REPORT INFORMATION
  Report Type: 
  Country: None (occurrence: None)
  Receive Date: 20090629
  Receipt Date: 20090619
  Transmission Date: 20091009
  Serious: Yes (Hospitalization)
  Sender: FDA-Public Use
  Company Number: PHHO2009FR05205

PATIENT
  Sex: Female
  Weight: 43.4 kg

DRUGS (8)
  1. ZOLEDRONIC ACID [Suspect]
     Indication: BONE SARCOMA
     Dosage: 4 MG, UNK
     Route: 042
     Dates: start: 20081110, end: 20090428
  2. METHOTREXATE [Suspect]
     Dosage: UNK
     Route: 042
     Dates: start: 20081110, end: 20090415
  3. VITAMIN D [Concomitant]
  4. CALCIUM [Concomitant]
  5. VEPESID [Concomitant]
  6. IFOSFAMIDE [Concomitant]
  7. SPASFON [Concomitant]
     Dosage: UNK
     Dates: start: 20081223
  8. ONDANSETRON [Concomitant]
     Indication: ANTIEMETIC SUPPORTIVE CARE
     Dosage: UNK
     Dates: start: 20090316, end: 20090420

REACTIONS (2)
  - CHILLS [None]
  - HYPERTHERMIA [None]
